FAERS Safety Report 4623017-0 (Version None)
Quarter: 2005Q1

REPORT INFORMATION
  Report Type: 
  Country: None (occurrence: None)
  Receive Date: 20050329
  Receipt Date: 20050321
  Transmission Date: 20050727
  Serious: Yes (Death, Other)
  Sender: FDA-Public Use
  Company Number: 200502363

PATIENT
  Age: 18 Month

DRUGS (2)
  1. BOTOX [Suspect]
     Dosage: 50 UNITS
  2. ANAESTHESIA [Suspect]
     Indication: ANAESTHESIA

REACTIONS (1)
  - EPILEPSY [None]
